FAERS Safety Report 8948477 (Version 2)
Quarter: 2013Q2

REPORT INFORMATION
  Report Type: Spontaneous
  Country: US (occurrence: US)
  Receive Date: 20121206
  Receipt Date: 20130401
  Transmission Date: 20140414
  Serious: Yes (Other)
  Sender: FDA-Public Use
  Company Number: US-BAYER-2012-126067

PATIENT
  Age: 37 Year
  Sex: Female

DRUGS (2)
  1. YAZ [Suspect]
  2. YASMIN [Suspect]

REACTIONS (4)
  - Thrombophlebitis superficial [Recovering/Resolving]
  - Pain [Recovering/Resolving]
  - Injury [Recovering/Resolving]
  - Pain [None]
